FAERS Safety Report 17467201 (Version 3)
Quarter: 2020Q1

REPORT INFORMATION
  Report Type: Report from Study
  Country: ZA (occurrence: ZA)
  Receive Date: 20200227
  Receipt Date: 20200325
  Transmission Date: 20200409
  Serious: Yes (Other)
  Sender: FDA-Public Use
  Company Number: ZA-PFIZER INC-2020081613

PATIENT
  Age: 80 Year
  Sex: Female

DRUGS (2)
  1. ZYVOXID [Suspect]
     Active Substance: LINEZOLID
     Dosage: 600 MG, 2X/DAY
     Dates: start: 20200121
  2. ERAXIS [Suspect]
     Active Substance: ANIDULAFUNGIN
     Dosage: 200 MG LOADING, UNK
     Dates: start: 20200122

REACTIONS (7)
  - Neutrophil count decreased [Unknown]
  - Body temperature increased [Unknown]
  - Culture positive [Unknown]
  - C-reactive protein increased [Unknown]
  - Blood urea increased [Unknown]
  - White blood cell count decreased [Unknown]
  - Blood creatinine increased [Unknown]

NARRATIVE: CASE EVENT DATE: 20200122
